FAERS Safety Report 5852430-9 (Version None)
Quarter: 2008Q3

REPORT INFORMATION
  Report Type: 
  Country: None (occurrence: None)
  Receive Date: 20080821
  Receipt Date: 20080815
  Transmission Date: 20090109
  Serious: Yes (Other)
  Sender: FDA-Public Use
  Company Number: US-BAYER-200827217NA

PATIENT
  Age: 38 Year
  Sex: Female
  Weight: 44 kg

DRUGS (5)
  1. YAZ [Suspect]
     Indication: CONTRACEPTION
     Route: 048
     Dates: end: 20080401
  2. YAZ [Suspect]
     Route: 048
     Dates: start: 20080608
  3. VITAMIN TAB [Concomitant]
     Indication: DRUG USE FOR UNKNOWN INDICATION
  4. NEXIUM [Concomitant]
     Indication: DRUG USE FOR UNKNOWN INDICATION
  5. GLUCOPHAGE [Concomitant]
     Indication: DRUG USE FOR UNKNOWN INDICATION

REACTIONS (9)
  - ABDOMINAL ADHESIONS [None]
  - BREAST MASS [None]
  - BREAST TENDERNESS [None]
  - DIZZINESS [None]
  - DYSGEUSIA [None]
  - NAUSEA [None]
  - UTERINE ENLARGEMENT [None]
  - WEIGHT DECREASED [None]
  - WITHDRAWAL BLEEDING IRREGULAR [None]
